FAERS Safety Report 8130076-X (Version None)
Quarter: 2011Q4

REPORT INFORMATION
  Report Type: 
  Country: None (occurrence: None)
  Receive Date: 20111227
  Receipt Date: 20111027
  Transmission Date: 20120403
  Serious: No
  Sender: FDA-Public Use
  Company Number: PHEH2011US03292

PATIENT
  Age: 42 Year
  Sex: Female
  Weight: 56.7 kg

DRUGS (7)
  1. GABAPENTIN [Concomitant]
  2. BACLOFEN [Concomitant]
  3. ASCORBIC ACID [Concomitant]
  4. ACTONEL [Concomitant]
  5. GILENYA [Suspect]
     Indication: MULTIPLE SCLEROSIS
     Dosage: 1 DF, EVERYDAY, ORAL
     Route: 048
     Dates: start: 20110816
  6. VITAMIN D [Concomitant]
  7. OSCAL (CALCIUM CARBONATE) [Concomitant]

REACTIONS (1)
  - LOGORRHOEA [None]
